FAERS Safety Report 11822171 (Version 1)
Quarter: 2015Q4

REPORT INFORMATION
  Report Type: Spontaneous
  Country: US (occurrence: US)
  Receive Date: 20151210
  Receipt Date: 20151210
  Transmission Date: 20160305
  Serious: No
  Sender: FDA-Public Use
  Company Number: US-JNJFOC-20150803508

PATIENT
  Age: 55 Year
  Sex: Male

DRUGS (11)
  1. GREEN TEA EXTRACT [Concomitant]
  2. GLUCOSAMINE + CHONDROITIN SULFATE [Concomitant]
  3. OMEGA 3 FISH OIL [Concomitant]
     Active Substance: FISH OIL\OMEGA-3 FATTY ACIDS
  4. CURCUMA LONGA [Concomitant]
     Active Substance: TURMERIC
  5. IBUPROFEN. [Concomitant]
     Active Substance: IBUPROFEN
  6. CLARITIN [Concomitant]
     Active Substance: LORATADINE
  7. ZINC [Concomitant]
     Active Substance: ZINC\ZINC CHLORIDE
  8. IMBRUVICA [Suspect]
     Active Substance: IBRUTINIB
     Indication: CHRONIC LEUKAEMIA
     Route: 048
     Dates: start: 20141217
  9. MULTIVITAMINS [Concomitant]
     Active Substance: VITAMINS
  10. FLONASE [Concomitant]
     Active Substance: FLUTICASONE PROPIONATE
  11. VALACYCLOVIR [Concomitant]
     Active Substance: VALACYCLOVIR HYDROCHLORIDE

REACTIONS (3)
  - Oedema peripheral [Unknown]
  - Contusion [Unknown]
  - Off label use [Unknown]

NARRATIVE: CASE EVENT DATE: 20141217
